FAERS Safety Report 10004179 (Version 2)
Quarter: 2014Q2

REPORT INFORMATION
  Report Type: Spontaneous
  Country: US (occurrence: US)
  Receive Date: 20140312
  Receipt Date: 20140611
  Transmission Date: 20141212
  Serious: No
  Sender: FDA-Public Use
  Company Number: US-INCYTE CORPORATION-2014IN000299

PATIENT
  Age: 68 Year
  Sex: Female

DRUGS (11)
  1. JAKAFI [Suspect]
     Indication: MYELOFIBROSIS
     Dosage: 5 MG, BID
     Route: 048
     Dates: start: 201401
  2. JAKAFI [Suspect]
     Dosage: 10 MG, BID
     Route: 048
     Dates: start: 20140106, end: 20140113
  3. JAKAFI [Suspect]
     Dosage: 10 MG, BID
     Route: 048
     Dates: start: 20140121, end: 20140210
  4. ZOFRAN                             /00955301/ [Concomitant]
  5. FAMOTIDINE [Concomitant]
  6. NORCO [Concomitant]
  7. ALLOPURINOL [Concomitant]
  8. LASIX                              /00032601/ [Concomitant]
  9. ALDACTONE                          /00006201/ [Concomitant]
  10. HYDROXYUREA [Concomitant]
  11. INDERAL [Concomitant]

REACTIONS (9)
  - Platelet count increased [Unknown]
  - Abdominal discomfort [Unknown]
  - Hypoaesthesia [Unknown]
  - Paraesthesia [Unknown]
  - Nausea [Unknown]
  - Headache [Unknown]
  - Dizziness [Unknown]
  - Contusion [Unknown]
  - Ecchymosis [Unknown]
